FAERS Safety Report 9602137 (Version 1)
Quarter: 2013Q4

REPORT INFORMATION
  Report Type: Spontaneous
  Country: FR (occurrence: FR)
  Receive Date: 20131007
  Receipt Date: 20131007
  Transmission Date: 20140711
  Serious: Yes (Hospitalization)
  Sender: FDA-Public Use
  Company Number: FR-ELI_LILLY_AND_COMPANY-FR201309008026

PATIENT
  Age: 71 Year
  Sex: Female

DRUGS (11)
  1. PROZAC [Suspect]
     Dosage: 20 MG, QD
     Route: 048
     Dates: start: 20120802
  2. COVERSYL [Suspect]
     Dosage: 2.5 MG, QD
     Route: 048
     Dates: start: 20120802
  3. INEXIUM [Suspect]
     Dosage: 20 MG, QD
     Route: 048
     Dates: start: 20120802
  4. PLAVIX [Suspect]
     Dosage: 75 MG, QD
     Route: 048
     Dates: start: 20120802
  5. TRAMADOL HYDROCHLORIDE [Suspect]
     Dosage: 200 MG, QD
     Route: 048
     Dates: start: 20120802
  6. METFORMINE [Suspect]
     Dosage: 700 MG, BID
     Route: 048
     Dates: start: 20120802
  7. TAHOR [Suspect]
     Dosage: 80 MG, QD
     Route: 048
     Dates: start: 20120802
  8. MONO-TILDIEM /FRA/ [Suspect]
     Dosage: 300 MG, UNK
     Route: 048
     Dates: start: 20130802
  9. JANUVIA [Suspect]
     Dosage: 100 MG, QD
     Route: 048
     Dates: start: 20120802
  10. CORTANCYL [Suspect]
     Dosage: 20 MG, QD
     Route: 048
     Dates: start: 20120802
  11. LEVOTHYROX [Suspect]
     Dosage: 125 UG, UNK
     Route: 048
     Dates: start: 20120802

REACTIONS (6)
  - Pemphigoid [Recovering/Resolving]
  - Erythema [Recovering/Resolving]
  - Pruritus [Recovering/Resolving]
  - Splenomegaly [Unknown]
  - Lymphocytosis [Unknown]
  - Eosinophilia [Unknown]
